FAERS Safety Report 21379043 (Version 2)
Quarter: 2022Q4

REPORT INFORMATION
  Report Type: Spontaneous
  Country: ES (occurrence: ES)
  Receive Date: 20220927
  Receipt Date: 20221008
  Transmission Date: 20230113
  Serious: Yes (Other)
  Sender: FDA-Public Use
  Company Number: ES-SA-2022SA368950

PATIENT
  Age: 3 Year
  Sex: Female

DRUGS (4)
  1. BORTEZOMIB [Suspect]
     Active Substance: BORTEZOMIB
     Indication: Lymphodepletion
     Dosage: 0.6 MG/M2 (LOW DOSE, DAY 6 TO 1)
     Route: 065
     Dates: start: 20180109, end: 20180114
  2. CYCLOPHOSPHAMIDE [Suspect]
     Active Substance: CYCLOPHOSPHAMIDE
     Indication: Lymphodepletion
     Dosage: 250 MG/M2 (DAY 5 TO 3)
     Route: 042
  3. CYCLOPHOSPHAMIDE [Suspect]
     Active Substance: CYCLOPHOSPHAMIDE
     Dosage: 1400 MG/M2, CYCLICAL
     Route: 042
     Dates: start: 20180109, end: 20180114
  4. FLUDARABINE PHOSPHATE [Suspect]
     Active Substance: FLUDARABINE PHOSPHATE
     Indication: Lymphodepletion
     Dosage: 25 MILLIGRAM/SQ. METER, CYCLICAL,(25 MG/M2/DOSE, QCY, DAYS 3, 4 AND 5 OF THE CYCLE )
     Route: 065
     Dates: start: 20180109, end: 20180114

REACTIONS (5)
  - Pyrexia [Unknown]
  - Cytokine release syndrome [Unknown]
  - Rash maculo-papular [Unknown]
  - Rash pruritic [Unknown]
  - Rash [Unknown]

NARRATIVE: CASE EVENT DATE: 20180101
